FAERS Safety Report 18635912 (Version 1)
Quarter: 2020Q4

REPORT INFORMATION
  Report Type: Spontaneous
  Country: CN (occurrence: CN)
  Receive Date: 20201218
  Receipt Date: 20201218
  Transmission Date: 20210114
  Serious: Yes (Hospitalization, Other)
  Sender: FDA-Public Use
  Company Number: CN-SA-2020SA358665

PATIENT

DRUGS (4)
  1. LANTUS [Suspect]
     Active Substance: INSULIN GLARGINE
     Indication: DIABETES MELLITUS
     Dosage: 16 IU, QD
     Route: 058
     Dates: start: 20191106, end: 20201109
  2. GLUCOPHAGE [Suspect]
     Active Substance: METFORMIN HYDROCHLORIDE
     Indication: DIABETES MELLITUS
     Dosage: 2 DF, BID
     Route: 048
     Dates: start: 20180323, end: 20201109
  3. LANTUS [Suspect]
     Active Substance: INSULIN GLARGINE
     Dosage: 11 IU, IN THE EVENING
     Route: 058
  4. GLICLAZIDE [Suspect]
     Active Substance: GLICLAZIDE
     Indication: DIABETES MELLITUS
     Dosage: 2 DF, QD
     Route: 048
     Dates: start: 20191106, end: 20201109

REACTIONS (3)
  - Metabolic encephalopathy [Recovered/Resolved]
  - Hypoglycaemia [Recovered/Resolved]
  - Lactic acidosis [Recovered/Resolved]

NARRATIVE: CASE EVENT DATE: 20201109
